FAERS Safety Report 15142820 (Version 2)
Quarter: 2019Q2

REPORT INFORMATION
  Report Type: Report from Study
  Country: US (occurrence: US)
  Receive Date: 20180713
  Receipt Date: 20190501
  Transmission Date: 20190711
  Serious: Yes (Other)
  Sender: FDA-Public Use
  Company Number: US-ASTELLAS-2017US052485

PATIENT
  Sex: Male

DRUGS (3)
  1. MIRABEGRON [Suspect]
     Active Substance: MIRABEGRON
     Indication: PRODUCT USED FOR UNKNOWN INDICATION
     Route: 048
  2. MIRABEGRON [Suspect]
     Active Substance: MIRABEGRON
     Route: 048
  3. MIRABEGRON [Suspect]
     Active Substance: MIRABEGRON
     Dosage: 25 MG (2 DF), ONCE DAILY
     Route: 048

REACTIONS (6)
  - Intentional product misuse [Unknown]
  - Prostatic disorder [Unknown]
  - Dry mouth [Not Recovered/Not Resolved]
  - Back pain [Not Recovered/Not Resolved]
  - Therapeutic product effect decreased [Unknown]
  - Product administration error [Unknown]
